FAERS Safety Report 20341078 (Version 1)
Quarter: 2022Q1

REPORT INFORMATION
  Report Type: Spontaneous
  Country: FR (occurrence: FR)
  Receive Date: 20220117
  Receipt Date: 20220117
  Transmission Date: 20220424
  Serious: Yes (Other)
  Sender: FDA-Public Use
  Company Number: FR-Axellia-003943

PATIENT
  Age: 15 Year
  Sex: Male

DRUGS (2)
  1. VORICONAZOLE [Interacting]
     Active Substance: VORICONAZOLE
     Indication: Pneumonia
  2. ETHAMBUTOL [Interacting]
     Active Substance: ETHAMBUTOL HYDROCHLORIDE
     Indication: Pneumonia
     Dosage: INTRODUCED TWO MONTHS LATER

REACTIONS (2)
  - Toxic optic neuropathy [Recovered/Resolved]
  - Drug interaction [Unknown]
